FAERS Safety Report 7912202-8 (Version None)
Quarter: 2011Q4

REPORT INFORMATION
  Report Type: 
  Country: None (occurrence: None)
  Receive Date: 20111114
  Receipt Date: 20110224
  Transmission Date: 20120403
  Serious: No
  Sender: FDA-Public Use
  Company Number: US-BAYER-2011-018366

PATIENT
  Sex: Female

DRUGS (4)
  1. CLIMARA [Suspect]
     Dosage: UNK
  2. CLIMARA [Suspect]
  3. CLIMARA [Suspect]
  4. CLIMARA [Suspect]

REACTIONS (2)
  - MENOPAUSAL SYMPTOMS [None]
  - PRODUCT ADHESION ISSUE [None]
